FAERS Safety Report 7065324-0 (Version None)
Quarter: 2010Q4

REPORT INFORMATION
  Report Type: 
  Country: None (occurrence: None)
  Receive Date: 20101022
  Receipt Date: 20101022
  Transmission Date: 20110411
  Serious: No
  Sender: FDA-Public Use
  Company Number: None

PATIENT
  Age: 67 Year
  Sex: Female
  Weight: 73.9 kg

DRUGS (1)
  1. HEPARIN SODIUM 1,000 UNITS IN DEXTROSE 5% [Suspect]
     Indication: SURGERY
     Dosage: 2-3 ML PER HOUR IV
     Route: 042
     Dates: start: 20101004, end: 20101006

REACTIONS (1)
  - HAEMOGLOBIN DECREASED [None]
